FAERS Safety Report 8542403-X (Version None)
Quarter: 2012Q3

REPORT INFORMATION
  Report Type: 
  Country: None (occurrence: None)
  Receive Date: 20120726
  Receipt Date: 20111128
  Transmission Date: 20120928
  Serious: Yes (Hospitalization)
  Sender: FDA-Public Use
  Company Number: US-ASTRAZENECA-2011SE57100

PATIENT
  Age: 51 Year
  Sex: Male
  Weight: 110.7 kg

DRUGS (5)
  1. ZYPREXA [Suspect]
     Route: 065
  2. METFORMIN HYDROCHLORIDE [Concomitant]
  3. SEROQUEL [Suspect]
     Route: 048
  4. SEROQUEL [Suspect]
     Route: 048
  5. INSULIN [Concomitant]
     Dosage: THREE TIMES A DAY

REACTIONS (2)
  - DIABETES MELLITUS INADEQUATE CONTROL [None]
  - DIABETES MELLITUS [None]
